FAERS Safety Report 9258659 (Version 1)
Quarter: 2013Q1

REPORT INFORMATION
  Report Type: Spontaneous
  Country: US (occurrence: None)
  Receive Date: 20121212
  Receipt Date: 20121212
  Transmission Date: 20140127
  Serious: No
  Sender: FDA-Public Use
  Company Number: 1209USA008817

PATIENT
  Age: 52 Year
  Sex: Male

DRUGS (3)
  1. PEGINTRON [Suspect]
     Indication: HEPATITIS C
     Route: 058
     Dates: start: 20120217, end: 20120217
  2. REBETOL [Suspect]
     Indication: HEPATITIS C
     Route: 048
     Dates: start: 20120217, end: 20120217
  3. VICTRELIS [Suspect]
     Indication: HEPATITIS C
     Route: 048
     Dates: start: 20120217, end: 20120217

REACTIONS (10)
  - Memory impairment [None]
  - Underdose [None]
  - Pain [None]
  - Feeling abnormal [None]
  - Irritability [None]
  - Fatigue [None]
  - Asthenia [None]
  - Headache [None]
  - Rash [None]
  - No therapeutic response [None]
